FAERS Safety Report 24995115 (Version 1)
Quarter: 2025Q1

REPORT INFORMATION
  Report Type: Spontaneous
  Country: IT (occurrence: IT)
  Receive Date: 20250221
  Receipt Date: 20250221
  Transmission Date: 20250408
  Serious: Yes (Other)
  Sender: ROCHE
  Company Number: IT-ROCHE-10000206568

PATIENT
  Age: 83 Year
  Sex: Female

DRUGS (3)
  1. FARICIMAB [Suspect]
     Active Substance: FARICIMAB
     Indication: Neovascular age-related macular degeneration
     Route: 065
     Dates: start: 20250203
  2. PREDNISONE [Concomitant]
     Active Substance: PREDNISONE
     Route: 048
  3. DEXAMETHASONE [Concomitant]
     Active Substance: DEXAMETHASONE
     Route: 061

REACTIONS (4)
  - Vitritis [Unknown]
  - Iridocyclitis [Unknown]
  - Corneal deposits [Unknown]
  - Blindness [Unknown]

NARRATIVE: CASE EVENT DATE: 20250206
